FAERS Safety Report 9224421 (Version 1)
Quarter: 2013Q2

REPORT INFORMATION
  Report Type: Spontaneous
  Country: US (occurrence: None)
  Receive Date: 20130408
  Receipt Date: 20130408
  Transmission Date: 20140414
  Serious: No
  Sender: FDA-Public Use
  Company Number: None

PATIENT
  Age: 60 Year
  Sex: Female
  Weight: 102.51 kg

DRUGS (1)
  1. HYDROCODONE [Suspect]
     Indication: PROCEDURAL PAIN
     Dosage: 5/325 AT 1ST 2 EVERY 4 HRS.
     Dates: start: 200701, end: 20130318

REACTIONS (3)
  - Libido increased [None]
  - Discomfort [None]
  - Incorrect drug administration duration [None]
